FAERS Safety Report 12693449 (Version 1)
Quarter: 2016Q3

REPORT INFORMATION
  Report Type: Spontaneous
  Country: SE (occurrence: SE)
  Receive Date: 20160829
  Receipt Date: 20160829
  Transmission Date: 20161109
  Serious: Yes (Life-Threatening, Hospitalization, Other)
  Sender: FDA-Public Use
  Company Number: SE-GLAXOSMITHKLINE-SE2016GSK123789

PATIENT
  Age: 16 Year
  Sex: Female

DRUGS (6)
  1. DIKLOFENAK [Suspect]
     Active Substance: DICLOFENAC SODIUM
     Indication: ABDOMINAL PAIN
     Dosage: UNK
     Route: 054
     Dates: start: 20160725, end: 20160725
  2. MORPHINE [Concomitant]
     Active Substance: MORPHINE
     Dosage: UNK
     Dates: start: 20160725, end: 20160725
  3. VOLTAREN [Suspect]
     Active Substance: DICLOFENAC SODIUM
     Indication: ABDOMINAL PAIN
     Dosage: UNK
     Route: 048
     Dates: start: 20160726, end: 20160726
  4. ZANTAC BRUS [Concomitant]
  5. SPASMOFEN [Concomitant]
     Active Substance: CODEINE HYDROCHLORIDE\METHSCOPOLAMINE NITRATE\MORPHINE HYDROCHLORIDE\ NOSCAPINE HYDROCHLORIDE\PAPAVERINE HYDROCHLORIDE
  6. ALVEDON [Concomitant]
     Active Substance: ACETAMINOPHEN

REACTIONS (1)
  - Acute kidney injury [Not Recovered/Not Resolved]
